FAERS Safety Report 20097876 (Version 1)
Quarter: 2021Q4

REPORT INFORMATION
  Report Type: Report from Study
  Country: EG (occurrence: EG)
  Receive Date: 20211122
  Receipt Date: 20211122
  Transmission Date: 20220303
  Serious: Yes (Other)
  Sender: FDA-Public Use
  Company Number: EG-NOVARTISPH-NVSC2021EG261556

PATIENT
  Age: 56 Year
  Sex: Male

DRUGS (9)
  1. ENTRESTO [Suspect]
     Active Substance: SACUBITRIL\VALSARTAN
     Indication: Cardiac failure
     Dosage: 1 DF, BID (ONE TABLET TWICE DAILY)
     Route: 065
     Dates: start: 202108
  2. EXAMIDE [Concomitant]
     Indication: Fluid retention
     Dosage: 20 MG, QD (STARTED 5 YEARS AGO)
     Route: 065
  3. EXAMIDE [Concomitant]
     Dosage: 10 MG, QD
     Route: 065
  4. EXAMIDE [Concomitant]
     Dosage: 20 MG, QD
     Route: 065
  5. CHOLEROSE [Concomitant]
     Indication: Cardiac disorder
     Dosage: 1 DF, QD (STARTED 5 YEARS AGO)
     Route: 048
  6. CARVEDILOL [Concomitant]
     Active Substance: CARVEDILOL
     Indication: Cardiac disorder
     Dosage: 1 DF, QD  (STARTED 5 YEARS AGO)
     Route: 048
  7. NEXIUM [Concomitant]
     Active Substance: ESOMEPRAZOLE MAGNESIUM
     Indication: Gastrointestinal disorder prophylaxis
     Dosage: 1 DF, QD  (STARTED 5 YEARS AGO)
     Route: 048
  8. GLICLAZIDE [Concomitant]
     Active Substance: GLICLAZIDE
     Indication: Diabetes mellitus
     Dosage: 1 DF, QD  (STARTED 5 YEARS AGO)
     Route: 048
  9. JANUMET [Concomitant]
     Active Substance: METFORMIN HYDROCHLORIDE\SITAGLIPTIN PHOSPHATE
     Indication: Diabetes mellitus
     Dosage: 1 DF, BID  (STARTED 5 YEARS AGO)
     Route: 048

REACTIONS (6)
  - Dyspnoea [Recovered/Resolved]
  - Insomnia [Recovered/Resolved]
  - Fatigue [Recovered/Resolved]
  - Heart rate increased [Recovering/Resolving]
  - Abdominal distension [Recovered/Resolved]
  - Diarrhoea [Recovered/Resolved]

NARRATIVE: CASE EVENT DATE: 20210801
